FAERS Safety Report 11096218 (Version 1)
Quarter: 2015Q2

REPORT INFORMATION
  Report Type: Spontaneous
  Country: US (occurrence: None)
  Receive Date: 20150506
  Receipt Date: 20150506
  Transmission Date: 20150821
  Serious: Yes (Life-Threatening, Hospitalization, Other)
  Sender: FDA-Public Use
  Company Number: None

PATIENT
  Age: 61 Year
  Sex: Female
  Weight: 66.68 kg

DRUGS (9)
  1. VITAMINS D [Concomitant]
  2. CALCIUM [Concomitant]
     Active Substance: CALCIUM
  3. MAGNESIUM [Concomitant]
     Active Substance: MAGNESIUM
  4. CO-ENZYME Q 10 [Concomitant]
  5. OMEGA 3 [Concomitant]
     Active Substance: OMEGA-3 FATTY ACIDS
  6. ALGAE [Concomitant]
  7. MULTIPLE VITAMIN [Concomitant]
     Active Substance: VITAMINS
  8. VITAMIN E [Concomitant]
     Active Substance: .ALPHA.-TOCOPHEROL
  9. HUMIRA [Suspect]
     Active Substance: ADALIMUMAB
     Indication: RHEUMATOID ARTHRITIS
     Dosage: 40 MG, EVERY OTHER WEEK, GIVEN INTO/UNDER THE SKIN
     Route: 058
     Dates: start: 20140717, end: 20150331

REACTIONS (6)
  - Intussusception [None]
  - Myelitis [None]
  - Multiple sclerosis [None]
  - Paraesthesia [None]
  - Hypoaesthesia [None]
  - Abdominal pain [None]

NARRATIVE: CASE EVENT DATE: 20150403
